FAERS Safety Report 5313389-6 (Version None)
Quarter: 2007Q2

REPORT INFORMATION
  Report Type: 
  Country: None (occurrence: None)
  Receive Date: 20070427
  Receipt Date: 20070427
  Transmission Date: 20071010
  Serious: No
  Sender: FDA-Public Use
  Company Number: None

PATIENT
  Sex: Male
  Weight: 68.6 kg

DRUGS (1)
  1. PENTOSTATIN [Suspect]
     Dosage: 7.8 MG

REACTIONS (4)
  - ANOREXIA [None]
  - DIARRHOEA [None]
  - FREQUENT BOWEL MOVEMENTS [None]
  - TREATMENT NONCOMPLIANCE [None]
